FAERS Safety Report 15167392 (Version 5)
Quarter: 2021Q1

REPORT INFORMATION
  Report Type: Report from Study
  Country: US (occurrence: US)
  Receive Date: 20180719
  Receipt Date: 20210122
  Transmission Date: 20210419
  Serious: Yes (Other)
  Sender: FDA-Public Use
  Company Number: PHEH2018US029982

PATIENT
  Sex: Female
  Weight: 83.46 kg

DRUGS (16)
  1. CYCLOSET [Concomitant]
     Active Substance: BROMOCRIPTINE MESYLATE
     Indication: DIABETES MELLITUS
     Dosage: 3 DF, QD (EVERY MORNING)
     Route: 065
     Dates: start: 20131201
  2. JANUMET [Concomitant]
     Active Substance: METFORMIN HYDROCHLORIDE\SITAGLIPTIN PHOSPHATE
     Indication: DIABETES MELLITUS
     Dosage: UNK UNK, BID
     Route: 065
     Dates: start: 20161227
  3. PHENTERMINE. [Concomitant]
     Active Substance: PHENTERMINE
     Indication: GASTROINTESTINAL HYPOMOTILITY
     Dosage: 37.5 MG, TID
     Route: 065
     Dates: start: 20130725
  4. LINZESS [Concomitant]
     Active Substance: LINACLOTIDE
     Indication: GASTROINTESTINAL HYPOMOTILITY
     Dosage: UNK, TWICE A WEEK
     Route: 065
     Dates: start: 20160611
  5. COSENTYX [Suspect]
     Active Substance: SECUKINUMAB
     Indication: PSORIASIS
     Dosage: 300 MG, QMO (Q4W)
     Route: 058
     Dates: start: 20170202, end: 20181127
  6. CRESTOR [Concomitant]
     Active Substance: ROSUVASTATIN CALCIUM
     Indication: HYPERLIPIDAEMIA
     Dosage: UNK
     Route: 065
     Dates: start: 20130725
  7. FEXOFENADINE [Concomitant]
     Active Substance: FEXOFENADINE HYDROCHLORIDE
     Indication: SEASONAL ALLERGY
     Dosage: 180 MG, QD
     Route: 065
     Dates: start: 20130725
  8. HUMULIN R [Concomitant]
     Active Substance: INSULIN HUMAN
     Indication: DIABETES MELLITUS
     Dosage: 12 UG, BID
     Route: 065
  9. LEVEMIR [Concomitant]
     Active Substance: INSULIN DETEMIR
     Dosage: 100 U, QD
     Route: 065
     Dates: start: 20160614
  10. NAPROSYN [Concomitant]
     Active Substance: NAPROXEN
     Indication: PAIN
     Dosage: 375 MG, BID
     Route: 065
     Dates: start: 20130701
  11. NEURONTIN [Concomitant]
     Active Substance: GABAPENTIN
     Indication: NEUROPATHY PERIPHERAL
     Dosage: 300 MG, TID
     Route: 065
  12. DOMPERIDONE [Concomitant]
     Active Substance: DOMPERIDONE
     Indication: IMPAIRED GASTRIC EMPTYING
     Dosage: 10 MG, TID
     Route: 065
  13. HUMULIN R [Concomitant]
     Active Substance: INSULIN HUMAN
     Dosage: 6 U, UNK
     Route: 058
     Dates: start: 20160701
  14. LEVEMIR [Concomitant]
     Active Substance: INSULIN DETEMIR
     Indication: DIABETES MELLITUS
     Dosage: 3 MG, UNK
     Route: 065
  15. INVOKANA [Concomitant]
     Active Substance: CANAGLIFLOZIN
     Indication: DIABETES MELLITUS
     Dosage: 1000 MG, QD
     Route: 065
     Dates: start: 20160524
  16. PREVACID [Concomitant]
     Active Substance: LANSOPRAZOLE
     Indication: GASTROOESOPHAGEAL REFLUX DISEASE
     Dosage: 30 MG, QD
     Route: 065
     Dates: start: 20130725

REACTIONS (15)
  - Diabetic neuropathy [Unknown]
  - Lymphocyte count increased [Unknown]
  - Blood glucose increased [Unknown]
  - Drug intolerance [Unknown]
  - Chronic gastritis [Unknown]
  - Anaemia [Not Recovered/Not Resolved]
  - Lymphadenopathy [Unknown]
  - Iron deficiency anaemia [Unknown]
  - Hepatic steatosis [Unknown]
  - Intestinal haemorrhage [Unknown]
  - Hepatic cirrhosis [Not Recovered/Not Resolved]
  - Diverticulum intestinal [Unknown]
  - Hepatic mass [Not Recovered/Not Resolved]
  - Neutrophil count increased [Unknown]
  - Lymphoid tissue hyperplasia [Unknown]

NARRATIVE: CASE EVENT DATE: 20171108
